FAERS Safety Report 13548987 (Version 1)
Quarter: 2017Q2

REPORT INFORMATION
  Report Type: Spontaneous
  Country: US (occurrence: US)
  Receive Date: 20170515
  Receipt Date: 20170515
  Transmission Date: 20170830
  Serious: Yes (Other)
  Sender: FDA-Public Use
  Company Number: None

PATIENT
  Age: 84 Year
  Sex: Male

DRUGS (16)
  1. TEMAZEPAM. [Concomitant]
     Active Substance: TEMAZEPAM
  2. FINASTERIDE. [Concomitant]
     Active Substance: FINASTERIDE
  3. LOSARTAN. [Concomitant]
     Active Substance: LOSARTAN
  4. DULOXETINE. [Concomitant]
     Active Substance: DULOXETINE
  5. ATORVASTATIN [Concomitant]
     Active Substance: ATORVASTATIN
  6. PREDNISONE. [Concomitant]
     Active Substance: PREDNISONE
  7. METOPROLOL. [Concomitant]
     Active Substance: METOPROLOL
  8. REVLIMID [Suspect]
     Active Substance: LENALIDOMIDE
     Indication: PLASMA CELL MYELOMA
     Dosage: 15MG DAILY X 14D/21D ORAL
     Route: 048
     Dates: start: 20170217, end: 20170505
  9. BORTEZIMIB [Concomitant]
  10. MELOXICAM. [Suspect]
     Active Substance: MELOXICAM
  11. FAMOTIDINE. [Concomitant]
     Active Substance: FAMOTIDINE
  12. TAMSULOSIN [Concomitant]
     Active Substance: TAMSULOSIN
  13. DEXAMETHASONE. [Concomitant]
     Active Substance: DEXAMETHASONE
  14. ACYCLOVIR. [Concomitant]
     Active Substance: ACYCLOVIR
  15. ASPIRIN. [Concomitant]
     Active Substance: ASPIRIN
  16. LENALIDOMIDE [Concomitant]
     Active Substance: LENALIDOMIDE

REACTIONS (2)
  - Muscle spasms [None]
  - Pain in extremity [None]

NARRATIVE: CASE EVENT DATE: 20170324
